FAERS Safety Report 13939775 (Version 1)
Quarter: 2017Q3

REPORT INFORMATION
  Report Type: Spontaneous
  Country: US (occurrence: US)
  Receive Date: 20170906
  Receipt Date: 20170906
  Transmission Date: 20171127
  Serious: No
  Sender: FDA-Public Use
  Company Number: US-009507513-1708USA011191

PATIENT
  Age: 40 Year
  Sex: Male

DRUGS (6)
  1. TEMODAR [Suspect]
     Active Substance: TEMOZOLOMIDE
     Indication: ANAPLASTIC ASTROCYTOMA
     Dosage: TWO CYCLES OF ADJUVANT TEMOZOLOMIDE
     Route: 048
  2. TEMODAR [Suspect]
     Active Substance: TEMOZOLOMIDE
     Dosage: 100 MG DAILY (21 DAYS OUT OF A 28-DAY CYCLE)
     Route: 048
     Dates: start: 201510
  3. TEMODAR [Suspect]
     Active Substance: TEMOZOLOMIDE
     Dosage: 100 MG DAILY
     Route: 048
     Dates: start: 2016
  4. TEMODAR [Suspect]
     Active Substance: TEMOZOLOMIDE
     Dosage: 100 MG, DAILY (CONTINUOUS DAILY DOSING)
     Route: 048
     Dates: end: 201606
  5. TEMODAR [Suspect]
     Active Substance: TEMOZOLOMIDE
     Dosage: 80 MG DAILY
     Route: 048
     Dates: start: 201606, end: 2016
  6. BEVACIZUMAB. [Concomitant]
     Active Substance: BEVACIZUMAB
     Indication: ANAPLASTIC ASTROCYTOMA
     Dosage: 14 DOSES OF BI-WEEKLY 10 MG/KG OVER A SEVEN AND A HALF MONTH

REACTIONS (4)
  - Drug effect decreased [Recovered/Resolved]
  - Lymphopenia [Unknown]
  - Fatigue [Recovering/Resolving]
  - Product use issue [Unknown]

NARRATIVE: CASE EVENT DATE: 2016
